FAERS Safety Report 9782488 (Version 5)
Quarter: 2014Q1

REPORT INFORMATION
  Report Type: Report from Study
  Country: JP (occurrence: JP)
  Receive Date: 20131226
  Receipt Date: 20140311
  Transmission Date: 20141002
  Serious: Yes (Hospitalization, Other)
  Sender: FDA-Public Use
  Company Number: JP-009507513-1311JPN008860

PATIENT
  Sex: Male
  Weight: 1.94 kg

DRUGS (5)
  1. GASTER D [Suspect]
     Indication: FOETAL EXPOSURE DURING PREGNANCY
     Dosage: 20 MG, QD UNKNOWN /D
     Route: 063
     Dates: start: 20130731
  2. GASTER D [Suspect]
     Indication: EXPOSURE DURING BREAST FEEDING
     Dosage: 20 MG QD, UNKNOWN/D
     Route: 064
     Dates: end: 20130108
  3. PROGRAF [Suspect]
     Indication: FOETAL EXPOSURE DURING PREGNANCY
     Dosage: 3 MG, UID/QD
     Route: 063
     Dates: start: 2013
  4. PROGRAF [Suspect]
     Indication: EXPOSURE DURING BREAST FEEDING
     Dosage: 3 MG, UID/ QD
     Route: 064
     Dates: end: 20130712
  5. PREDNISOLONE [Concomitant]
     Dosage: UNK
     Route: 048

REACTIONS (3)
  - Neonatal asphyxia [Recovered/Resolved]
  - Premature baby [Unknown]
  - Exposure during breast feeding [Unknown]
